FAERS Safety Report 9815778 (Version 1)
Quarter: 2014Q1

REPORT INFORMATION
  Report Type: Spontaneous
  Country: US (occurrence: US)
  Receive Date: 20140114
  Receipt Date: 20140114
  Transmission Date: 20141002
  Serious: Yes (Other)
  Sender: FDA-Public Use
  Company Number: US-BAYER-2014-002263

PATIENT
  Age: 33 Year
  Sex: Female
  Weight: 113 kg

DRUGS (1)
  1. MIDOL MENSTRUAL COMPLETE FORMULA [Suspect]
     Dosage: 2 DF, ONCE
     Route: 048
     Dates: start: 20140102, end: 20140102

REACTIONS (3)
  - Pharyngeal oedema [Recovered/Resolved]
  - Pruritus [Recovered/Resolved]
  - Urticaria [Recovering/Resolving]
